FAERS Safety Report 19479458 (Version 21)
Quarter: 2024Q1

REPORT INFORMATION
  Report Type: Report from Study
  Country: MX (occurrence: MX)
  Receive Date: 20210630
  Receipt Date: 20240301
  Transmission Date: 20240409
  Serious: Yes (Other)
  Sender: FDA-Public Use
  Company Number: MX-TAKEDA-2021TUS029490

PATIENT
  Age: 27 Year
  Sex: Female
  Weight: 63.5 kg

DRUGS (3)
  1. VEDOLIZUMAB [Suspect]
     Active Substance: VEDOLIZUMAB
     Indication: Crohn^s disease
     Dosage: 300 MILLIGRAM
     Route: 042
     Dates: start: 20210324
  2. VEDOLIZUMAB [Suspect]
     Active Substance: VEDOLIZUMAB
     Dosage: 300 MILLIGRAM, Q4WEEKS
     Route: 042
  3. VEDOLIZUMAB [Suspect]
     Active Substance: VEDOLIZUMAB
     Dosage: 300 MILLIGRAM
     Route: 042

REACTIONS (36)
  - Asphyxia [Recovering/Resolving]
  - Crohn^s disease [Not Recovered/Not Resolved]
  - Acute febrile neutrophilic dermatosis [Unknown]
  - Haematochezia [Recovered/Resolved]
  - Somnolence [Recovered/Resolved]
  - Gastrointestinal inflammation [Recovering/Resolving]
  - Acarodermatitis [Not Recovered/Not Resolved]
  - Diarrhoea [Recovered/Resolved]
  - Rectal tenesmus [Not Recovered/Not Resolved]
  - Granuloma [Not Recovered/Not Resolved]
  - COVID-19 [Recovered/Resolved]
  - Anaemia [Recovered/Resolved]
  - Abdominal discomfort [Recovering/Resolving]
  - Eructation [Recovering/Resolving]
  - Asthenia [Recovered/Resolved]
  - Inflammation [Recovered/Resolved]
  - Food intolerance [Recovered/Resolved]
  - Dehydration [Recovered/Resolved]
  - Insomnia [Unknown]
  - Stress [Unknown]
  - Vitamin D deficiency [Unknown]
  - Inappropriate schedule of product administration [Unknown]
  - Fistula [Unknown]
  - Gastrointestinal stoma complication [Recovered/Resolved]
  - Vomiting [Recovered/Resolved]
  - Decreased appetite [Recovered/Resolved]
  - Abdominal distension [Recovered/Resolved]
  - Flatulence [Recovered/Resolved]
  - Influenza [Not Recovered/Not Resolved]
  - Rash [Not Recovered/Not Resolved]
  - Blood pressure decreased [Unknown]
  - Pain [Recovered/Resolved]
  - Discomfort [Recovered/Resolved]
  - Dizziness [Recovered/Resolved]
  - Chills [Recovered/Resolved]
  - Nausea [Recovered/Resolved]

NARRATIVE: CASE EVENT DATE: 20210617
